FAERS Safety Report 14684940 (Version 4)
Quarter: 2018Q4

REPORT INFORMATION
  Report Type: Report from Study
  Country: US (occurrence: US)
  Receive Date: 20180327
  Receipt Date: 20181231
  Transmission Date: 20190204
  Serious: No
  Sender: FDA-Public Use
  Company Number: US-CLOVIS ONCOLOGY-CLO-2018-000172

PATIENT
  Age: 58 Year
  Sex: Female

DRUGS (2)
  1. RUBRACA [Suspect]
     Active Substance: RUCAPARIB CAMSYLATE
     Indication: OVARIAN CANCER
     Dosage: 600 MG, BID
     Route: 048
     Dates: start: 20180201
  2. RUBRACA [Suspect]
     Active Substance: RUCAPARIB CAMSYLATE
     Indication: OVARIAN CANCER

REACTIONS (26)
  - Hyperacusis [Unknown]
  - Cough [Unknown]
  - Vomiting [Unknown]
  - Weight increased [Unknown]
  - Insomnia [Unknown]
  - Myalgia [Unknown]
  - Skin discolouration [Not Recovered/Not Resolved]
  - Nausea [Unknown]
  - Diarrhoea [Unknown]
  - Depression [Not Recovered/Not Resolved]
  - Blood glucose increased [Unknown]
  - Tooth disorder [Unknown]
  - Throat irritation [Unknown]
  - Headache [Unknown]
  - Burning sensation [Not Recovered/Not Resolved]
  - Asthenia [Not Recovered/Not Resolved]
  - Product dose omission [Unknown]
  - Melanoplakia oral [Unknown]
  - Abdominal pain [Unknown]
  - Decreased appetite [Not Recovered/Not Resolved]
  - Dysgeusia [Unknown]
  - Neuropathy peripheral [Not Recovered/Not Resolved]
  - Weight decreased [Unknown]
  - Pain in extremity [Not Recovered/Not Resolved]
  - Anxiety [Unknown]
  - Fatigue [Not Recovered/Not Resolved]

NARRATIVE: CASE EVENT DATE: 2018
